FAERS Safety Report 21260573 (Version 1)
Quarter: 2022Q3

REPORT INFORMATION
  Report Type: Report from Study
  Country: US (occurrence: None)
  Receive Date: 20220826
  Receipt Date: 20220826
  Transmission Date: 20221026
  Serious: Yes (Death)
  Sender: FDA-Public Use
  Company Number: 2022A294578

PATIENT
  Sex: Male

DRUGS (3)
  1. FARXIGA [Suspect]
     Active Substance: DAPAGLIFLOZIN PROPANEDIOL
     Indication: Diabetes mellitus
     Route: 048
     Dates: start: 20161215
  2. BYDUREON BCISE [Suspect]
     Active Substance: EXENATIDE
     Route: 042
     Dates: start: 20181010
  3. BRILINTA [Concomitant]
     Active Substance: TICAGRELOR
     Route: 065
     Dates: start: 20171116

REACTIONS (1)
  - Death [Fatal]
